FAERS Safety Report 7600117-4 (Version None)
Quarter: 2011Q3

REPORT INFORMATION
  Report Type: 
  Country: None (occurrence: None)
  Receive Date: 20110711
  Receipt Date: 20110628
  Transmission Date: 20111222
  Serious: Yes (Hospitalization)
  Sender: FDA-Public Use
  Company Number: JP-ELI_LILLY_AND_COMPANY-JP201104003513

PATIENT
  Age: 65 Year
  Sex: Female

DRUGS (2)
  1. FORTEO [Suspect]
     Route: 058
  2. CALCIUM CARBONATE [Concomitant]
     Route: 048

REACTIONS (4)
  - INJECTION SITE PRURITUS [None]
  - MUSCULOSKELETAL STIFFNESS [None]
  - HOSPITALISATION [None]
  - INJECTION SITE ERYTHEMA [None]
